FAERS Safety Report 7668969-X (Version None)
Quarter: 2011Q3

REPORT INFORMATION
  Report Type: 
  Country: None (occurrence: None)
  Receive Date: 20110808
  Receipt Date: 20110801
  Transmission Date: 20111222
  Serious: Yes (Hospitalization)
  Sender: FDA-Public Use
  Company Number: JP-GLAXOSMITHKLINE-B0730111A

PATIENT
  Sex: Female

DRUGS (7)
  1. LAMICTAL [Suspect]
     Dosage: 50MG PER DAY
     Route: 048
     Dates: start: 20110531, end: 20110627
  2. LAMICTAL [Suspect]
     Indication: EPILEPSY
     Dosage: 25MG PER DAY
     Route: 048
     Dates: start: 20110517, end: 20110530
  3. REMERON [Suspect]
     Indication: DEPRESSION
     Dosage: 15MG PER DAY
     Route: 048
  4. ARICEPT [Suspect]
     Indication: DEMENTIA OF THE ALZHEIMER'S TYPE, UNCOMPLICATED
     Dosage: 5MG PER DAY
     Route: 048
  5. AMITRIPTYLINE HCL [Suspect]
     Indication: DEPRESSION
     Dosage: 20MG PER DAY
     Route: 048
  6. DEPAKENE [Suspect]
     Indication: EPILEPSY
     Dosage: 400MG PER DAY
     Route: 048
  7. ZOLOFT [Suspect]
     Indication: DEPRESSION
     Dosage: 50MG PER DAY
     Route: 048

REACTIONS (3)
  - DRUG INTERACTION [None]
  - ERYTHEMA MULTIFORME [None]
  - EOSINOPHIL COUNT INCREASED [None]
